FAERS Safety Report 13363022 (Version 5)
Quarter: 2018Q2

REPORT INFORMATION
  Report Type: Report from Study
  Country: US (occurrence: US)
  Receive Date: 20170323
  Receipt Date: 20180426
  Transmission Date: 20180711
  Serious: No
  Sender: FDA-Public Use
  Company Number: PHHY2017US044053

PATIENT
  Age: 57 Year
  Sex: Female

DRUGS (1)
  1. GILENYA [Suspect]
     Active Substance: FINGOLIMOD HYDROCHLORIDE
     Indication: MULTIPLE SCLEROSIS
     Dosage: UNK, QD
     Route: 048

REACTIONS (21)
  - Irritability [Unknown]
  - Faeces hard [Unknown]
  - Blood alkaline phosphatase increased [Recovered/Resolved]
  - Anxiety [Recovered/Resolved]
  - Hypertension [Unknown]
  - Neoplasm [Unknown]
  - Insomnia [Unknown]
  - Seborrhoeic keratosis [Unknown]
  - Nausea [Recovered/Resolved]
  - Disturbance in attention [Recovered/Resolved]
  - Melanocytic naevus [Unknown]
  - Rosacea [Unknown]
  - Alanine aminotransferase increased [Recovered/Resolved]
  - Haemangioma [Unknown]
  - Fatigue [Recovered/Resolved]
  - Balance disorder [Recovered/Resolved]
  - Fibrous histiocytoma [Unknown]
  - Decreased vibratory sense [Unknown]
  - Lymphocyte count decreased [Unknown]
  - Aspartate aminotransferase increased [Recovered/Resolved]
  - Musculoskeletal stiffness [Unknown]

NARRATIVE: CASE EVENT DATE: 20161206
